FAERS Safety Report 7110759-0 (Version None)
Quarter: 2010Q4

REPORT INFORMATION
  Report Type: 
  Country: None (occurrence: None)
  Receive Date: 20101118
  Receipt Date: 20101112
  Transmission Date: 20110411
  Serious: Yes (Disabling)
  Sender: FDA-Public Use
  Company Number: B0684507A

PATIENT
  Sex: Male

DRUGS (9)
  1. LAMICTAL [Suspect]
     Indication: EPILEPSY
     Dosage: 50MG PER DAY
     Route: 048
     Dates: start: 20100528, end: 20100610
  2. LAMICTAL [Suspect]
     Dosage: 100MG PER DAY
     Route: 048
     Dates: start: 20100611, end: 20100624
  3. LAMICTAL [Suspect]
     Dosage: 150MG PER DAY
     Route: 048
     Dates: start: 20100625, end: 20100629
  4. LAMICTAL [Suspect]
     Dosage: 200MG PER DAY
     Route: 048
     Dates: start: 20100630, end: 20100630
  5. LAMICTAL [Suspect]
     Dosage: 250MG PER DAY
     Route: 048
     Dates: start: 20100701, end: 20100908
  6. LAMICTAL [Suspect]
     Dosage: 225MG PER DAY
     Route: 048
     Dates: start: 20100909, end: 20100924
  7. EXCEGRAN [Concomitant]
     Indication: EPILEPSY
     Route: 048
  8. TEGRETOL [Concomitant]
     Indication: EPILEPSY
     Route: 048
  9. TOPIRAMATE [Concomitant]
     Route: 048

REACTIONS (4)
  - AMNESIA [None]
  - DISORIENTATION [None]
  - LISTLESS [None]
  - MENTAL IMPAIRMENT [None]
